FAERS Safety Report 7278345-X (Version None)
Quarter: 2011Q1

REPORT INFORMATION
  Report Type: 
  Country: None (occurrence: None)
  Receive Date: 20110207
  Receipt Date: 20110125
  Transmission Date: 20110831
  Serious: Yes (Hospitalization, Other)
  Sender: FDA-Public Use
  Company Number: DK-RANBAXY-2011R1-41461

PATIENT
  Age: 47 Year
  Sex: Male

DRUGS (8)
  1. CORDARONE [Suspect]
     Indication: CONDUCTION DISORDER
     Dosage: 200 MG, QD
     Route: 048
     Dates: start: 20100928, end: 20101210
  2. SERTRALINE HYDROCHLORIDE [Concomitant]
     Indication: DEPRESSION
     Dosage: 50 MG, QD
     Route: 048
     Dates: start: 20090101, end: 20101215
  3. BISOPROLOL [Concomitant]
     Indication: CARDIAC FAILURE
  4. DICLOXACILLIN [Concomitant]
     Indication: INFECTION
     Dosage: 1 G, QID
     Route: 048
     Dates: start: 20101211
  5. BISOPROLOL [Concomitant]
     Indication: ARRHYTHMIA
     Dosage: 5 MG, BID
     Route: 048
     Dates: start: 20060101, end: 20101215
  6. CORODIL [Concomitant]
     Indication: CARDIAC FAILURE
     Dosage: 20 MG, QD
     Route: 048
     Dates: start: 20060101, end: 20101215
  7. SIMVASTATIN [Suspect]
     Indication: HYPERCHOLESTEROLAEMIA
     Dosage: 40 MG, QD
     Route: 048
     Dates: start: 20060101, end: 20101215
  8. FUCIDINE CAP [Suspect]
     Indication: CARDIAC INFECTION
     Dosage: 500 MG, TID
     Route: 048
     Dates: start: 20101109, end: 20101215

REACTIONS (3)
  - DRUG INTERACTION [None]
  - RENAL FAILURE ACUTE [None]
  - RHABDOMYOLYSIS [None]
